FAERS Safety Report 8848916 (Version 2)
Quarter: 2012Q4

REPORT INFORMATION
  Report Type: 
  Country: US (occurrence: None)
  Receive Date: 20121016
  Receipt Date: 20121102
  Transmission Date: 20130627
  Serious: Yes (Other)
  Sender: FDA-Public Use
  Company Number: 20120638

PATIENT
  Age: 20 Year
  Sex: Female

DRUGS (5)
  1. VASOPRESSIN [Suspect]
     Indication: BLEEDING
     Dosage: 1/2 cc intracervical
     Route: 019
     Dates: start: 20120929, end: 20120929
  2. SODIUM BICARBONATE [Suspect]
     Indication: BLEEDING
     Dosage: 1 cc intracervical
     Route: 019
     Dates: start: 20120929, end: 20120929
  3. MIDAZOLAM HCL [Suspect]
     Dosage: 2mg/2ml
     Dates: start: 20120929, end: 20120929
  4. FENTANYL CITRATE [Suspect]
     Dosage: 100mcg/2ml
     Dates: start: 20120929, end: 20120929
  5. LIDOCAINE [Suspect]
     Indication: BLEEDING
     Dosage: 20 mg/mL intracervical
     Dates: start: 20120929, end: 20120929

REACTIONS (5)
  - Product quality issue [None]
  - Off label use [None]
  - Grand mal convulsion [None]
  - Unresponsive to stimuli [None]
  - Oxygen saturation decreased [None]
